FAERS Safety Report 24916038 (Version 2)
Quarter: 2025Q3

REPORT INFORMATION
  Report Type: Spontaneous
  Country: CH (occurrence: CH)
  Receive Date: 20250203
  Receipt Date: 20250803
  Transmission Date: 20251020
  Serious: Yes (Hospitalization)
  Sender: ALEXION PHARMACEUTICALS
  Company Number: None

PATIENT
  Age: 73 Year
  Sex: Female

DRUGS (11)
  1. ROSUVASTATIN [Suspect]
     Active Substance: ROSUVASTATIN
     Indication: Accidental exposure to product
     Dosage: 10 MILLIGRAM, ONCE
     Route: 065
     Dates: start: 20231107, end: 20231107
  2. BISOPROLOL FUMARATE [Suspect]
     Active Substance: BISOPROLOL FUMARATE
     Dosage: 5 MILLIGRAM, ONCE
     Route: 065
     Dates: start: 20231107, end: 20231107
  3. POTASSIUM CHLORIDE [Suspect]
     Active Substance: POTASSIUM CHLORIDE
     Route: 065
     Dates: start: 20231107, end: 20231107
  4. LAVENDER OIL [Suspect]
     Active Substance: LAVENDER OIL
     Route: 065
     Dates: start: 20231107, end: 20231107
  5. ELIQUIS [Suspect]
     Active Substance: APIXABAN
     Dosage: 5 MILLIGRAM, ONCE
     Dates: start: 20231107, end: 20231107
  6. XARELTO [Concomitant]
     Active Substance: RIVAROXABAN
     Dosage: 15 MILLIGRAM, EVERY 12 HRS
  7. ESCITALOPRAM OXALATE [Concomitant]
     Active Substance: ESCITALOPRAM OXALATE
     Dosage: 10 MILLIGRAM, EVERY 12 HRS
  8. PIPAMPERONE [Concomitant]
     Active Substance: PIPAMPERONE
     Dosage: 40 MILLIGRAM, 1/DAY
  9. Rivastigmin mepha [Concomitant]
     Dosage: 9.5 MILLIGRAM, 1/DAY
  10. MIRTAZAPINE [Concomitant]
     Active Substance: MIRTAZAPINE
     Dosage: 22.5 MILLIGRAM, 1/DAY
  11. PANTOPRAZOLE SODIUM [Concomitant]
     Active Substance: PANTOPRAZOLE SODIUM
     Dosage: 40 MILLIGRAM, 1/DAY

REACTIONS (2)
  - Accidental exposure to product [Recovered/Resolved]
  - Sinus bradycardia [Unknown]
